FAERS Safety Report 10507815 (Version 1)
Quarter: 2014Q4

REPORT INFORMATION
  Report Type: Spontaneous
  Country: US (occurrence: US)
  Receive Date: 20141009
  Receipt Date: 20141009
  Transmission Date: 20150528
  Serious: Yes (Hospitalization, Other)
  Sender: FDA-Public Use
  Company Number: US-ABBVIE-14P-163-1290063-00

PATIENT
  Sex: Female
  Weight: 63.56 kg

DRUGS (4)
  1. HYDROCORTISONE. [Concomitant]
     Active Substance: HYDROCORTISONE
     Indication: ADDISON^S DISEASE
     Dosage: 10 MG IN A.M., 5 MG IN P.M.DAILY
  2. HUMIRA [Suspect]
     Active Substance: ADALIMUMAB
     Route: 065
  3. HUMIRA [Suspect]
     Active Substance: ADALIMUMAB
     Route: 065
     Dates: end: 201408
  4. HUMIRA [Suspect]
     Active Substance: ADALIMUMAB
     Indication: CROHN^S DISEASE
     Route: 065

REACTIONS (5)
  - Abscess [Not Recovered/Not Resolved]
  - Infertility [Recovered/Resolved]
  - Infection [Not Recovered/Not Resolved]
  - Weight gain poor [Not Recovered/Not Resolved]
  - Uterine disorder [Recovered/Resolved]

NARRATIVE: CASE EVENT DATE: 2013
